FAERS Safety Report 10191627 (Version 2)
Quarter: 2014Q2

REPORT INFORMATION
  Report Type: Report from Study
  Country: JP (occurrence: JP)
  Receive Date: 20140523
  Receipt Date: 20140523
  Transmission Date: 20141212
  Serious: Yes (Other)
  Sender: FDA-Public Use
  Company Number: JP-B.I. PHARMACEUTICALS,INC./RIDGEFIELD-2014-BI-18202NB

PATIENT
  Age: 72 Year
  Sex: Male
  Weight: 57 kg

DRUGS (3)
  1. PRAZAXA [Suspect]
     Indication: CEREBROVASCULAR ACCIDENT PROPHYLAXIS
     Dosage: 220 MG
     Route: 048
     Dates: start: 20120419
  2. NU-LOTAN [Concomitant]
     Dosage: 50 MG
     Route: 048
     Dates: start: 20120117
  3. DIART [Concomitant]
     Indication: PROPHYLAXIS
     Dosage: 30 MG
     Route: 048
     Dates: start: 20140114

REACTIONS (5)
  - Cardiac failure chronic [Recovered/Resolved]
  - Hyperuricaemia [Not Recovered/Not Resolved]
  - Dyspepsia [Recovered/Resolved]
  - Low density lipoprotein increased [Not Recovered/Not Resolved]
  - Blood urine present [Not Recovered/Not Resolved]
